FAERS Safety Report 6065156-6 (Version None)
Quarter: 2009Q1

REPORT INFORMATION
  Report Type: 
  Country: None (occurrence: None)
  Receive Date: 20090130
  Receipt Date: 20090120
  Transmission Date: 20090719
  Serious: Yes (Death, Hospitalization)
  Sender: FDA-Public Use
  Company Number: 2006-01400

PATIENT
  Age: 59 Year
  Sex: Male
  Weight: 65 kg

DRUGS (8)
  1. VELCADE [Suspect]
     Indication: T-CELL LYMPHOMA
     Dosage: 2.76 MG UNK INTRAVENOUS
     Route: 042
     Dates: start: 20060408, end: 20060516
  2. DOXORUBICIN HCL [Suspect]
     Indication: T-CELL LYMPHOMA
     Dosage: 138.00 MG INTRAVENOUS
     Route: 042
     Dates: start: 20060408, end: 20060512
  3. CYCLOPHOSPHAMIDE [Suspect]
     Indication: T-CELL LYMPHOMA
     Dosage: 2210.00 MG UNK INTRAVENOUS
     Route: 042
     Dates: start: 20060408, end: 20060512
  4. METHOTREXATE [Suspect]
     Indication: T-CELL LYMPHOMA
     Dosage: 15.00 MG
     Dates: start: 20060411, end: 20060512
  5. PREDNISONE TAB [Suspect]
     Indication: T-CELL LYMPHOMA
     Dosage: 110.00 ORAL
     Route: 048
     Dates: start: 20060408, end: 20060516
  6. BLEOMYCIN SULFATE [Suspect]
     Indication: T-CELL LYMPHOMA
     Dosage: 10.00 MG UNK INTRAVENOUS
     Route: 042
     Dates: start: 20060408, end: 20060516
  7. GRANOCYTE 13-34 (LENOGRASTIM) INJECTION, 150 MG/M2 [Suspect]
     Indication: T-CELL LYMPHOMA
     Dates: start: 20060519, end: 20060530
  8. ELDISINE [Suspect]
     Indication: T-CELL LYMPHOMA
     Dosage: 3.68 MG INTRAVENOUS
     Route: 042
     Dates: start: 20060408, end: 20060516

REACTIONS (10)
  - ANAEMIA [None]
  - CONDITION AGGRAVATED [None]
  - FEBRILE NEUTROPENIA [None]
  - HISTIOCYTOSIS HAEMATOPHAGIC [None]
  - LYMPHOMA [None]
  - PULMONARY HAEMORRHAGE [None]
  - RENAL FAILURE ACUTE [None]
  - SPLENOMEGALY [None]
  - THROMBOCYTOPENIA [None]
  - TREATMENT FAILURE [None]
